FAERS Safety Report 18986595 (Version 1)
Quarter: 2021Q1

REPORT INFORMATION
  Report Type: Report from Study
  Country: US (occurrence: US)
  Receive Date: 20210309
  Receipt Date: 20210309
  Transmission Date: 20210420
  Serious: Yes (Hospitalization, Other)
  Sender: FDA-Public Use
  Company Number: US-BRISTOL-MYERS SQUIBB COMPANY-BMS-2021-020801

PATIENT
  Sex: Male
  Weight: 113.38 kg

DRUGS (7)
  1. APIXABAN [Suspect]
     Active Substance: APIXABAN
     Indication: PULMONARY EMBOLISM
     Dosage: UNK
     Route: 065
     Dates: start: 202001
  2. CLONAZEPAM. [Concomitant]
     Active Substance: CLONAZEPAM
     Indication: ANXIETY
     Dosage: UNK
     Route: 065
  3. VITAMIN D [VITAMIN D NOS] [Concomitant]
     Active Substance: VITAMIN D NOS
     Indication: PRODUCT USED FOR UNKNOWN INDICATION
     Dosage: UNK, QWK
     Route: 065
  4. QUETIAPINE. [Concomitant]
     Active Substance: QUETIAPINE
     Indication: PRODUCT USED FOR UNKNOWN INDICATION
     Dosage: UNK
     Route: 065
  5. HUMIRA [Suspect]
     Active Substance: ADALIMUMAB
     Indication: CROHN^S DISEASE
     Dosage: 40 MILLIGRAM, QWK
     Route: 058
     Dates: start: 1999
  6. AMITRIPTYLINE [Concomitant]
     Active Substance: AMITRIPTYLINE
     Indication: DEPRESSION
     Dosage: UNK
     Route: 065
  7. RABEPRAZOLE [Concomitant]
     Active Substance: RABEPRAZOLE
     Indication: PRODUCT USED FOR UNKNOWN INDICATION
     Dosage: UNK
     Route: 065

REACTIONS (12)
  - Epistaxis [Recovered/Resolved]
  - Pulmonary embolism [Recovered/Resolved]
  - Concussion [Recovering/Resolving]
  - Vitamin D deficiency [Unknown]
  - Hypotension [Recovering/Resolving]
  - Contusion [Recovering/Resolving]
  - Dizziness [Not Recovered/Not Resolved]
  - Hypertension [Recovering/Resolving]
  - Neck pain [Not Recovered/Not Resolved]
  - Memory impairment [Not Recovered/Not Resolved]
  - Lung disorder [Not Recovered/Not Resolved]
  - Chest discomfort [Unknown]

NARRATIVE: CASE EVENT DATE: 2018
